FAERS Safety Report 4422236-6 (Version None)
Quarter: 2004Q3

REPORT INFORMATION
  Report Type: 
  Country: None (occurrence: None)
  Receive Date: 20040810
  Receipt Date: 20040726
  Transmission Date: 20050211
  Serious: Yes (Hospitalization)
  Sender: FDA-Public Use
  Company Number: FR-JNJFOC-20031004738

PATIENT
  Sex: Female

DRUGS (6)
  1. RISPERDAL [Suspect]
     Indication: DELUSION
     Route: 049
  2. HALDOL [Suspect]
     Indication: DELUSION
     Route: 049
  3. DEPAKOTE [Concomitant]
  4. IMOVANE [Concomitant]
  5. FOLIC ACID [Concomitant]
  6. XENETIX [Concomitant]

REACTIONS (6)
  - AMNIOCENTESIS ABNORMAL [None]
  - CONDITION AGGRAVATED [None]
  - DELUSION [None]
  - DRUG EXPOSURE DURING PREGNANCY [None]
  - PREGNANCY [None]
  - PULMONARY EMBOLISM [None]
